FAERS Safety Report 25857990 (Version 1)
Quarter: 2025Q3

REPORT INFORMATION
  Report Type: Spontaneous
  Country: US (occurrence: US)
  Receive Date: 20250929
  Receipt Date: 20250929
  Transmission Date: 20251020
  Serious: Yes (Other)
  Sender: STRIDES
  Company Number: US-STRIDES ARCOLAB LIMITED-2024SP017210

PATIENT
  Age: 22 Year
  Sex: Female

DRUGS (26)
  1. PREDNISOLONE [Suspect]
     Active Substance: PREDNISOLONE
     Indication: Eosinophilic gastritis
     Route: 065
  2. PREDNISOLONE [Suspect]
     Active Substance: PREDNISOLONE
     Indication: Hypereosinophilic syndrome
     Route: 065
  3. PREDNISOLONE [Suspect]
     Active Substance: PREDNISOLONE
     Indication: Gastroenteritis eosinophilic
     Route: 065
  4. PREDNISOLONE [Suspect]
     Active Substance: PREDNISOLONE
     Indication: Eosinophilic oesophagitis
     Route: 065
  5. PREDNISOLONE [Suspect]
     Active Substance: PREDNISOLONE
     Route: 065
  6. PREDNISOLONE [Suspect]
     Active Substance: PREDNISOLONE
     Route: 065
  7. PREDNISOLONE [Suspect]
     Active Substance: PREDNISOLONE
     Route: 065
  8. AZATHIOPRINE [Suspect]
     Active Substance: AZATHIOPRINE
     Indication: Eosinophilic gastritis
     Route: 065
  9. AZATHIOPRINE [Suspect]
     Active Substance: AZATHIOPRINE
     Indication: Inflammatory bowel disease
     Route: 065
  10. BUDESONIDE [Suspect]
     Active Substance: BUDESONIDE
     Indication: Eosinophilic gastritis
     Route: 065
  11. BUDESONIDE [Suspect]
     Active Substance: BUDESONIDE
     Indication: Hypereosinophilic syndrome
     Route: 065
  12. BUDESONIDE [Suspect]
     Active Substance: BUDESONIDE
     Indication: Gastroenteritis eosinophilic
  13. BUDESONIDE [Suspect]
     Active Substance: BUDESONIDE
     Indication: Eosinophilic oesophagitis
  14. BENRALIZUMAB [Suspect]
     Active Substance: BENRALIZUMAB
     Indication: Eosinophilic gastritis
     Route: 065
  15. BENRALIZUMAB [Suspect]
     Active Substance: BENRALIZUMAB
     Indication: Hypereosinophilic syndrome
  16. BENRALIZUMAB [Suspect]
     Active Substance: BENRALIZUMAB
     Indication: Gastroenteritis eosinophilic
  17. BENRALIZUMAB [Suspect]
     Active Substance: BENRALIZUMAB
     Indication: Eosinophilic oesophagitis
  18. MEPOLIZUMAB [Suspect]
     Active Substance: MEPOLIZUMAB
     Indication: Eosinophilic gastritis
     Route: 058
  19. MEPOLIZUMAB [Suspect]
     Active Substance: MEPOLIZUMAB
     Indication: Hypereosinophilic syndrome
  20. MEPOLIZUMAB [Suspect]
     Active Substance: MEPOLIZUMAB
     Indication: Gastroenteritis eosinophilic
  21. MEPOLIZUMAB [Suspect]
     Active Substance: MEPOLIZUMAB
     Indication: Eosinophilic oesophagitis
  22. CROMOLYN [Suspect]
     Active Substance: CROMOLYN
     Indication: Eosinophilic gastritis
     Route: 065
  23. CROMOLYN [Suspect]
     Active Substance: CROMOLYN
     Indication: Hypereosinophilic syndrome
  24. CROMOLYN [Suspect]
     Active Substance: CROMOLYN
     Indication: Gastroenteritis eosinophilic
  25. CROMOLYN [Suspect]
     Active Substance: CROMOLYN
     Indication: Eosinophilic oesophagitis
  26. FLUTICASONE [Concomitant]
     Active Substance: FLUTICASONE
     Indication: Eosinophilic oesophagitis
     Route: 065

REACTIONS (4)
  - Therapy partial responder [Unknown]
  - Condition aggravated [Recovered/Resolved]
  - Disease recurrence [Recovered/Resolved]
  - Drug ineffective for unapproved indication [Unknown]
